FAERS Safety Report 25778899 (Version 1)
Quarter: 2025Q3

REPORT INFORMATION
  Report Type: Report from Study
  Country: US (occurrence: US)
  Receive Date: 20250909
  Receipt Date: 20250909
  Transmission Date: 20251020
  Serious: No
  Sender: DR REDDYS
  Company Number: US-DRL-USA-USA/2025/08/013272

PATIENT
  Sex: Male
  Weight: 99.79 kg

DRUGS (5)
  1. JAVYGTOR [Suspect]
     Active Substance: SAPROPTERIN DIHYDROCHLORIDE
     Indication: Phenylketonuria
     Dosage: TAKE OR DISSOLVE 16 TABLETS IN 4 TO 8 OZ. OF WATER OR APPLE JUICE AND DRINK ONCE DAILY WITH MEAL AS
     Route: 048
  2. PHENEX-2 30G-410 POWDER [Concomitant]
     Indication: Product used for unknown indication
     Route: 065
  3. VITAMIN D3 10 MCG TABLET [Concomitant]
     Indication: Product used for unknown indication
     Route: 065
  4. ASHWAGANDHA-35 120 MG CAPSULE [Concomitant]
     Indication: Product used for unknown indication
     Route: 065
  5. CO Q-10 100MG-5 CAPSULE [Concomitant]
     Indication: Product used for unknown indication
     Route: 065

REACTIONS (2)
  - Sunburn [Unknown]
  - Affective disorder [Unknown]
